FAERS Safety Report 7328750-8 (Version None)
Quarter: 2011Q1

REPORT INFORMATION
  Report Type: 
  Country: None (occurrence: None)
  Receive Date: 20110303
  Receipt Date: 20110220
  Transmission Date: 20110831
  Serious: Yes (Hospitalization)
  Sender: FDA-Public Use
  Company Number: PHHY2011IL14558

PATIENT
  Age: 32 Year
  Sex: Male

DRUGS (3)
  1. ALCOHOL [Interacting]
  2. RITALIN LA [Interacting]
     Dosage: 80 MG, UNK
  3. RITALIN LA [Suspect]
     Dosage: 40 MG, UNK

REACTIONS (2)
  - PSYCHOTIC DISORDER [None]
  - DRUG INTERACTION [None]
